FAERS Safety Report 20236695 (Version 1)
Quarter: 2021Q4

REPORT INFORMATION
  Report Type: Spontaneous
  Country: US (occurrence: None)
  Receive Date: 20211227
  Receipt Date: 20211227
  Transmission Date: 20220303
  Serious: No
  Sender: FDA-Public Use
  Company Number: None

PATIENT
  Age: 10 Month
  Sex: Male

DRUGS (3)
  1. PRIVIGEN [Suspect]
     Active Substance: HUMAN IMMUNOGLOBULIN G
     Indication: Chronic inflammatory demyelinating polyradiculoneuropathy
     Dosage: OTHER FREQUENCY : ONCE PER 28 DAYS;?
     Route: 042
     Dates: start: 20211222, end: 20211222
  2. BENADRYL [Concomitant]
     Active Substance: DIPHENHYDRAMINE HYDROCHLORIDE
     Dates: start: 20211222, end: 20211222
  3. TYLENOL [Concomitant]
     Active Substance: ACETAMINOPHEN
     Dates: start: 20211222, end: 20211222

REACTIONS (4)
  - Infusion related reaction [None]
  - Urticaria [None]
  - Lip swelling [None]
  - Hypersensitivity [None]

NARRATIVE: CASE EVENT DATE: 20211222
